FAERS Safety Report 5937216-9 (Version None)
Quarter: 2008Q4

REPORT INFORMATION
  Report Type: 
  Country: None (occurrence: None)
  Receive Date: 20081031
  Receipt Date: 20081027
  Transmission Date: 20090506
  Serious: Yes (Death)
  Sender: FDA-Public Use
  Company Number: US-ABBOTT-08P-163-0483752-00

PATIENT
  Sex: Female
  Weight: 64.922 kg

DRUGS (9)
  1. HUMIRA [Suspect]
     Indication: CROHN'S DISEASE
     Dosage: 160MG LOADING DOSE
     Dates: start: 20080918, end: 20080918
  2. HUMIRA [Suspect]
     Dates: start: 20081002, end: 20081002
  3. ESOMEPRAZOLE MAGNESIUM [Concomitant]
     Indication: DRUG USE FOR UNKNOWN INDICATION
     Route: 048
     Dates: end: 20081015
  4. ACETAMINOPHEN W/ CODEINE [Concomitant]
     Indication: CROHN'S DISEASE
     Dosage: 300/30MG AS REQUIRED
     Route: 048
     Dates: end: 20081015
  5. ACETAMINOPHEN W/ CODEINE [Concomitant]
     Indication: PAIN
  6. TOPIRAMATE [Concomitant]
     Indication: HEADACHE
     Route: 048
     Dates: end: 20081015
  7. RIZATRIPTAN BENZOATE [Concomitant]
     Indication: HEADACHE
     Route: 048
  8. DIPHENHYDRAMINE HYDROCHLORIDE [Concomitant]
     Indication: HYPERSENSITIVITY
     Route: 048
     Dates: end: 20081015
  9. KAPSOVIT [Concomitant]
     Indication: VITAMIN SUPPLEMENTATION
     Route: 048
     Dates: end: 20081015

REACTIONS (1)
  - ROAD TRAFFIC ACCIDENT [None]
